FAERS Safety Report 6933579-6 (Version None)
Quarter: 2010Q3

REPORT INFORMATION
  Report Type: 
  Country: None (occurrence: None)
  Receive Date: 20100820
  Receipt Date: 20100817
  Transmission Date: 20110219
  Serious: Yes (Death)
  Sender: FDA-Public Use
  Company Number: CN-ASTRAZENECA-2010SE35405

PATIENT
  Age: 66 Year
  Sex: Female

DRUGS (3)
  1. SEROQUEL [Suspect]
     Indication: SLEEP DISORDER
     Route: 048
  2. PAROXETINE HCL [Concomitant]
     Indication: DEPRESSION
     Dosage: UNKNOW DOSAGE.
     Route: 048
  3. CARDIOPULMONARY MEDICATION [Concomitant]
     Indication: COR PULMONALE

REACTIONS (1)
  - DEATH [None]
